FAERS Safety Report 9815459 (Version 1)
Quarter: 2014Q1

REPORT INFORMATION
  Report Type: Spontaneous
  Country: US (occurrence: US)
  Receive Date: 20140114
  Receipt Date: 20140114
  Transmission Date: 20141002
  Serious: No
  Sender: FDA-Public Use
  Company Number: US-PFIZER INC-2014009926

PATIENT
  Age: 64 Year
  Sex: Female
  Weight: 95.24 kg

DRUGS (4)
  1. GABAPENTIN [Suspect]
     Indication: DIABETIC NEUROPATHY
     Dosage: 400 MG, 3X/DAY
     Dates: end: 20140108
  2. GABAPENTIN [Suspect]
     Indication: BACK DISORDER
  3. LOSARTAN POTASSIUM W/HYDROCHLOROTHIAZIDE [Concomitant]
     Indication: HYPERTENSION
     Dosage: 25 MG, DAILY
  4. FLEXERIL [Concomitant]
     Indication: BACK DISORDER
     Dosage: 10 MG, DAILY

REACTIONS (4)
  - Off label use [Unknown]
  - Drug ineffective for unapproved indication [Unknown]
  - Intervertebral disc disorder [Unknown]
  - Muscle spasms [Unknown]
